FAERS Safety Report 17827970 (Version 1)
Quarter: 2020Q2

REPORT INFORMATION
  Report Type: Spontaneous
  Country: US (occurrence: US)
  Receive Date: 20200527
  Receipt Date: 20200527
  Transmission Date: 20200714
  Serious: No
  Sender: FDA-Public Use
  Company Number: US-PERRIGO-19US011799

PATIENT
  Age: 2 Year
  Sex: Female
  Weight: 13.61 kg

DRUGS (1)
  1. ACETAMINOPHEN. [Suspect]
     Active Substance: ACETAMINOPHEN
     Indication: PYREXIA
     Dosage: 120 MG, Q 4 TO 6 HOURS, PRN
     Route: 054
     Dates: start: 20190927, end: 20190929

REACTIONS (1)
  - Product administered to patient of inappropriate age [Recovered/Resolved]

NARRATIVE: CASE EVENT DATE: 20190927
